FAERS Safety Report 12521141 (Version 15)
Quarter: 2018Q2

REPORT INFORMATION
  Report Type: Report from Study
  Country: US (occurrence: US)
  Receive Date: 20160701
  Receipt Date: 20180404
  Transmission Date: 20180711
  Serious: Yes (Other)
  Sender: FDA-Public Use
  Company Number: US-JNJFOC-20160324685

PATIENT
  Age: 82 Year
  Sex: Female

DRUGS (13)
  1. IMBRUVICA [Suspect]
     Active Substance: IBRUTINIB
     Indication: CHRONIC LYMPHOCYTIC LEUKAEMIA
     Route: 048
     Dates: start: 20150730, end: 2018
  2. IMBRUVICA [Suspect]
     Active Substance: IBRUTINIB
     Indication: CHRONIC LYMPHOCYTIC LEUKAEMIA
     Route: 048
     Dates: start: 20151124
  3. IMBRUVICA [Suspect]
     Active Substance: IBRUTINIB
     Indication: CHRONIC LYMPHOCYTIC LEUKAEMIA
     Route: 048
     Dates: start: 20171127
  4. ADVAIR HFA [Concomitant]
     Active Substance: FLUTICASONE PROPIONATE\SALMETEROL XINAFOATE
     Indication: ASTHMA
  5. PRESERVISION [Concomitant]
     Active Substance: MINERALS\VITAMINS
     Indication: MACULAR DEGENERATION
  6. ADVAIR HFA [Concomitant]
     Active Substance: FLUTICASONE PROPIONATE\SALMETEROL XINAFOATE
     Indication: ASTHMA
  7. ADVAIR HFA [Concomitant]
     Active Substance: FLUTICASONE PROPIONATE\SALMETEROL XINAFOATE
     Indication: MACULAR DEGENERATION
  8. VITAMIN B NOS [Concomitant]
     Active Substance: VITAMIN B
  9. IMBRUVICA [Suspect]
     Active Substance: IBRUTINIB
     Indication: CHRONIC LYMPHOCYTIC LEUKAEMIA
     Route: 048
     Dates: start: 2018
  10. NORVASC [Concomitant]
     Active Substance: AMLODIPINE BESYLATE
     Indication: HYPERTENSION
     Route: 048
  11. ALBUTEROL. [Concomitant]
     Active Substance: ALBUTEROL
  12. ADVAIR HFA [Concomitant]
     Active Substance: FLUTICASONE PROPIONATE\SALMETEROL XINAFOATE
     Indication: MACULAR DEGENERATION
  13. BENAZEPRIL [Concomitant]
     Active Substance: BENAZEPRIL HYDROCHLORIDE
     Indication: HYPERTENSION
     Route: 048

REACTIONS (27)
  - Hernia [Recovering/Resolving]
  - Bone disorder [Not Recovered/Not Resolved]
  - Depression [Not Recovered/Not Resolved]
  - Laboratory test abnormal [Unknown]
  - Rash pruritic [Not Recovered/Not Resolved]
  - Impaired healing [Recovering/Resolving]
  - Insomnia [Recovering/Resolving]
  - Increased tendency to bruise [Unknown]
  - Asthenia [Not Recovered/Not Resolved]
  - Dizziness [Not Recovered/Not Resolved]
  - Musculoskeletal pain [Unknown]
  - Red blood cell count decreased [Not Recovered/Not Resolved]
  - Dyspnoea [Unknown]
  - Neck pain [Unknown]
  - Cataract [Not Recovered/Not Resolved]
  - Blood potassium decreased [Unknown]
  - Visual impairment [Not Recovered/Not Resolved]
  - Cough [Not Recovered/Not Resolved]
  - Arthralgia [Recovered/Resolved]
  - Skin mass [Not Recovered/Not Resolved]
  - Myalgia [Recovered/Resolved]
  - Drug dose omission [Not Recovered/Not Resolved]
  - Bone pain [Recovered/Resolved]
  - White blood cell count increased [Not Recovered/Not Resolved]
  - Sunburn [Unknown]
  - Thrombosis [Recovering/Resolving]
  - Fatigue [Not Recovered/Not Resolved]

NARRATIVE: CASE EVENT DATE: 201707
